FAERS Safety Report 7389694-9 (Version None)
Quarter: 2011Q2

REPORT INFORMATION
  Report Type: 
  Country: None (occurrence: None)
  Receive Date: 20110401
  Receipt Date: 20110329
  Transmission Date: 20111010
  Serious: Yes (Hospitalization)
  Sender: FDA-Public Use
  Company Number: EC-MERCK-1103PER00007

PATIENT
  Age: 52 Year
  Sex: Male

DRUGS (6)
  1. OMEPRAZOLE [Concomitant]
     Route: 042
  2. TRAMADOL HYDROCHLORIDE [Concomitant]
     Route: 030
  3. INVANZ [Suspect]
     Indication: SEPSIS
     Route: 042
  4. ENOXAPARIN SODIUM [Concomitant]
     Route: 058
  5. FUROSEMIDE [Concomitant]
     Route: 065
  6. INSULIN [Concomitant]
     Route: 058

REACTIONS (3)
  - HALLUCINATION, VISUAL [None]
  - DELIRIUM [None]
  - NEUROTOXICITY [None]
